FAERS Safety Report 9617404 (Version 2)
Quarter: 2013Q4

REPORT INFORMATION
  Report Type: Spontaneous
  Country: US (occurrence: None)
  Receive Date: 20131009
  Receipt Date: 20131025
  Transmission Date: 20140711
  Serious: Yes (Hospitalization)
  Sender: FDA-Public Use
  Company Number: A1044125A

PATIENT
  Age: 73 Year
  Sex: Female

DRUGS (7)
  1. STANNOUS FLUORIDE [Suspect]
     Indication: DENTAL CARE
     Dates: start: 201302
  2. ONE-A-DAY VITAMINS [Concomitant]
  3. CALTRATE 600 +D [Concomitant]
  4. OSTEO-BI-FLEX [Concomitant]
  5. ANTIHYPERCHOLESTEROLAEMIC [Concomitant]
  6. HERBAL TEA [Concomitant]
  7. BLOOD PRESSURE MEDICATION [Suspect]

REACTIONS (8)
  - Swollen tongue [None]
  - Pharyngeal oedema [None]
  - Rash generalised [None]
  - Hypersensitivity [None]
  - Local swelling [None]
  - Dyspnoea [None]
  - Feeling abnormal [None]
  - Anaphylactic shock [None]
